FAERS Safety Report 13780747 (Version 1)
Quarter: 2017Q3

REPORT INFORMATION
  Report Type: Spontaneous
  Country: US (occurrence: US)
  Receive Date: 20170721
  Receipt Date: 20170721
  Transmission Date: 20171127
  Serious: Yes (Hospitalization)
  Sender: FDA-Public Use
  Company Number: None

PATIENT
  Age: 16 Year
  Sex: Male
  Weight: 68.4 kg

DRUGS (1)
  1. SUMATRIPTAN TABLETS, USP, 100MG [Suspect]
     Active Substance: SUMATRIPTAN
     Indication: MIGRAINE
     Dosage: ?          OTHER STRENGTH:MG;QUANTITY:1 TABLET(S);?
     Route: 048
     Dates: start: 20170721, end: 20170721

REACTIONS (7)
  - Dizziness [None]
  - Muscle tightness [None]
  - Heart rate increased [None]
  - Blood pressure increased [None]
  - Throat tightness [None]
  - Speech disorder [None]
  - Disorientation [None]

NARRATIVE: CASE EVENT DATE: 20170721
